FAERS Safety Report 19396701 (Version 3)
Quarter: 2021Q2

REPORT INFORMATION
  Report Type: Report from Study
  Country: AU (occurrence: AU)
  Receive Date: 20210609
  Receipt Date: 20210616
  Transmission Date: 20210717
  Serious: Yes (Other)
  Sender: FDA-Public Use
  Company Number: AU-ASTRAZENECA-2021A496494

PATIENT
  Age: 423 Month
  Sex: Male
  Weight: 81 kg

DRUGS (13)
  1. AZD?4573. [Suspect]
     Active Substance: AZD-4573
     Indication: DIFFUSE LARGE B-CELL LYMPHOMA
     Dosage: WEEKLY
     Route: 042
     Dates: start: 20210415, end: 20210415
  2. ACALABRUTINIB. [Suspect]
     Active Substance: ACALABRUTINIB
     Indication: DIFFUSE LARGE B-CELL LYMPHOMA
     Route: 048
     Dates: start: 20210415
  3. ALLOPURINOL. [Concomitant]
     Active Substance: ALLOPURINOL
     Indication: BLOOD URIC ACID
     Dosage: 600 MG
     Route: 048
     Dates: start: 20210412
  4. AZD?4573. [Suspect]
     Active Substance: AZD-4573
     Indication: DIFFUSE LARGE B-CELL LYMPHOMA
     Dosage: WEEKLY
     Route: 042
     Dates: start: 20210513, end: 20210513
  5. VALACICLOVIR [Concomitant]
     Active Substance: VALACYCLOVIR HYDROCHLORIDE
     Indication: PROPHYLAXIS
     Dosage: 500 MG
     Route: 048
     Dates: start: 20210209
  6. AZD?4573. [Suspect]
     Active Substance: AZD-4573
     Indication: DIFFUSE LARGE B-CELL LYMPHOMA
     Dosage: WEEKLY
     Route: 042
     Dates: start: 20210422, end: 20210422
  7. AZD?4573. [Suspect]
     Active Substance: AZD-4573
     Indication: DIFFUSE LARGE B-CELL LYMPHOMA
     Dosage: WEEKLY
     Route: 042
     Dates: start: 20210429, end: 20210429
  8. MIRTAZAPINE. [Concomitant]
     Active Substance: MIRTAZAPINE
     Dosage: DAILY
     Route: 048
     Dates: start: 20210421
  9. TARGIN [Concomitant]
     Active Substance: NALOXONE HYDROCHLORIDE\OXYCODONE HYDROCHLORIDE
     Indication: PAIN MANAGEMENT
     Dosage: 10 MG
     Route: 048
     Dates: start: 20210414
  10. OXYCODONE [Concomitant]
     Active Substance: OXYCODONE
     Indication: PAIN MANAGEMENT
     Dosage: 5 MG
     Route: 048
     Dates: start: 20210414
  11. AZD?4573. [Suspect]
     Active Substance: AZD-4573
     Indication: DIFFUSE LARGE B-CELL LYMPHOMA
     Dosage: WEEKLY
     Route: 042
     Dates: start: 20210506, end: 20210506
  12. DAPSONE. [Concomitant]
     Active Substance: DAPSONE
     Indication: PROPHYLAXIS
     Dosage: 100 MG
     Route: 048
     Dates: start: 20210209
  13. PHENERGAN [Concomitant]
     Active Substance: PROMETHAZINE HYDROCHLORIDE
     Dosage: 25 MG
     Route: 048
     Dates: start: 20210421

REACTIONS (1)
  - Liver function test abnormal [Recovered/Resolved]

NARRATIVE: CASE EVENT DATE: 20210430
